FAERS Safety Report 8330381-8 (Version None)
Quarter: 2012Q2

REPORT INFORMATION
  Report Type: 
  Country: None (occurrence: None)
  Receive Date: 20120430
  Receipt Date: 20111005
  Transmission Date: 20120825
  Serious: Yes (Other)
  Sender: FDA-Public Use
  Company Number: 2011AP002341

PATIENT
  Age: 69 Year
  Sex: Female

DRUGS (5)
  1. CISPLATIN [Concomitant]
  2. PACLITAXEL [Concomitant]
  3. DOXORUBICIN HCL [Concomitant]
  4. GABAPENTIN [Suspect]
     Indication: POLYNEUROPATHY
     Dosage: 300 MG;QD ; 3600 MG;QD
  5. GABAPENTIN [Suspect]
     Indication: OFF LABEL USE
     Dosage: 300 MG;QD ; 3600 MG;QD

REACTIONS (3)
  - FALL [None]
  - DRUG INEFFECTIVE [None]
  - OFF LABEL USE [None]
